FAERS Safety Report 21623958 (Version 1)
Quarter: 2022Q4

REPORT INFORMATION
  Report Type: Spontaneous
  Country: ES (occurrence: ES)
  Receive Date: 20221121
  Receipt Date: 20221121
  Transmission Date: 20230113
  Serious: Yes (Hospitalization, Other)
  Sender: FDA-Public Use
  Company Number: None

PATIENT
  Sex: Female

DRUGS (5)
  1. MEMANTINE [Suspect]
     Active Substance: MEMANTINE
     Indication: Cognitive disorder
     Dosage: 20 MG, QD
     Route: 048
     Dates: start: 20181126, end: 20211230
  2. PARACETAMOL AUROVITAS [Concomitant]
     Dosage: 1 G
     Route: 048
  3. QUETIAPINE FUMARATE [Concomitant]
     Active Substance: QUETIAPINE FUMARATE
     Indication: Dementia Alzheimer^s type
     Dosage: 25 MG DAILY
     Route: 048
     Dates: start: 20210908
  4. CONDROSAN [Concomitant]
     Indication: Osteoarthritis
     Dosage: 800 MG DAILY
     Route: 048
     Dates: start: 20201223
  5. ATORVASTATINA ALTER [Concomitant]
     Indication: Lipid metabolism disorder
     Dosage: 20 MG DAILY
     Route: 048
     Dates: start: 20120710

REACTIONS (1)
  - Pemphigoid [Recovered/Resolved]

NARRATIVE: CASE EVENT DATE: 20211230
